FAERS Safety Report 19932655 (Version 2)
Quarter: 2022Q4

REPORT INFORMATION
  Report Type: Spontaneous
  Country: IN (occurrence: IN)
  Receive Date: 20211008
  Receipt Date: 20221216
  Transmission Date: 20230113
  Serious: Yes (Hospitalization, Other)
  Sender: FDA-Public Use
  Company Number: IN-MACLEODS PHARMACEUTICALS US LTD-MAC2021032884

PATIENT

DRUGS (4)
  1. TRAMADOL [Suspect]
     Active Substance: TRAMADOL
     Indication: Back pain
     Dosage: 50 MILLIGRAM, TID
     Route: 048
  2. TRAMADOL [Suspect]
     Active Substance: TRAMADOL
     Indication: Insomnia
  3. ONDANSETRON [Suspect]
     Active Substance: ONDANSETRON
     Indication: Insomnia
     Dosage: 4 MILLIGRAM, BID
     Route: 048
  4. ONDANSETRON [Suspect]
     Active Substance: ONDANSETRON
     Indication: Back pain

REACTIONS (4)
  - Rhabdomyolysis [Recovered/Resolved]
  - Renal tubular injury [Recovered/Resolved]
  - Myoglobinuria [Recovered/Resolved]
  - Serotonin syndrome [Recovered/Resolved]
